FAERS Safety Report 4302073-3 (Version None)
Quarter: 2004Q1

REPORT INFORMATION
  Report Type: 
  Country: None (occurrence: None)
  Receive Date: 20040220
  Receipt Date: 20040205
  Transmission Date: 20041129
  Serious: Yes (Hospitalization)
  Sender: FDA-Public Use
  Company Number: 2004007652

PATIENT
  Age: 37 Year
  Sex: Male

DRUGS (6)
  1. ZOXAN LP (DOXAZOSIN) [Suspect]
     Indication: ILL-DEFINED DISORDER
     Dosage: ORAL
     Route: 048
     Dates: start: 20030701
  2. VIAGRA [Suspect]
     Indication: ILL-DEFINED DISORDER
     Dates: start: 20010101, end: 20020101
  3. TADALAFIL (TADALAFIL) [Suspect]
     Indication: ILL-DEFINED DISORDER
     Dosage: 20 MG (DAILY), ORAL
     Route: 048
     Dates: start: 20021001, end: 20031001
  4. GLATIRAMER ACETATE (GLATIRAMER ACETATE) [Suspect]
     Indication: ILL-DEFINED DISORDER
     Dosage: SBUCUTANEOUS
     Route: 058
     Dates: start: 20020801
  5. INTERFERON BETA (INTERFERON BETA) [Concomitant]
  6. TAMSULOSIN HYDROCHLORIDE (TAMSULOSIN HYDROCHLORIDE) [Concomitant]

REACTIONS (4)
  - ALANINE AMINOTRANSFERASE INCREASED [None]
  - ASPARTATE AMINOTRANSFERASE INCREASED [None]
  - IATROGENIC INJURY [None]
  - INFLAMMATION [None]
